FAERS Safety Report 5241049-9 (Version None)
Quarter: 2007Q1

REPORT INFORMATION
  Report Type: 
  Country: None (occurrence: None)
  Receive Date: 20070214
  Receipt Date: 20070214
  Transmission Date: 20070707
  Serious: Yes (Hospitalization)
  Sender: FDA-Public Use
  Company Number: None

PATIENT
  Age: 60 Year
  Sex: Female
  Weight: 93.638 kg

DRUGS (1)
  1. LOTREL [Suspect]
     Indication: HYPERTENSION
     Dosage: 10/40 MG DAILY PO
     Route: 048
     Dates: start: 20061113, end: 20061125

REACTIONS (3)
  - COUGH [None]
  - DYSPNOEA [None]
  - SWOLLEN TONGUE [None]
